FAERS Safety Report 4976815-8 (Version None)
Quarter: 2006Q2

REPORT INFORMATION
  Report Type: 
  Country: None (occurrence: None)
  Receive Date: 20060413
  Receipt Date: 20060403
  Transmission Date: 20061013
  Serious: Yes (Hospitalization)
  Sender: FDA-Public Use
  Company Number: 2006045161

PATIENT
  Sex: Female

DRUGS (2)
  1. BENADRYL [Suspect]
     Indication: HYPERSENSITIVITY
     Dosage: 2 ULTRATABS EVERY 6-8 HOURS, ORAL
     Route: 048
     Dates: start: 20060331, end: 20060401
  2. NAPROXEN SODIUM [Suspect]
     Indication: SHOULDER PAIN

REACTIONS (6)
  - BLOOD PRESSURE SYSTOLIC INCREASED [None]
  - CHEST DISCOMFORT [None]
  - CHEST PAIN [None]
  - DIZZINESS [None]
  - DYSPNOEA [None]
  - REFUSAL OF TREATMENT BY PATIENT [None]
